FAERS Safety Report 16755507 (Version 1)
Quarter: 2019Q3

REPORT INFORMATION
  Report Type: Spontaneous
  Country: US (occurrence: US)
  Receive Date: 20190711
  Receipt Date: 20190711
  Transmission Date: 20191005
  Serious: No
  Sender: FDA-Public Use
  Company Number: None

PATIENT
  Age: 76 Year
  Sex: Female
  Weight: 68.04 kg

DRUGS (8)
  1. ALENDRONATE 70MG [Suspect]
     Active Substance: ALENDRONATE SODIUM
     Indication: OSTEOPOROSIS
     Dosage: ?          QUANTITY:70 MG MILLIGRAM(S);?
     Route: 048
     Dates: end: 20181116
  2. METOPROLOL SUCC ER [Concomitant]
     Active Substance: METOPROLOL SUCCINATE
  3. CALCIUM [Concomitant]
     Active Substance: CALCIUM
  4. SIMVASTATIN. [Concomitant]
     Active Substance: SIMVASTATIN
  5. FISH OIL [Concomitant]
     Active Substance: FISH OIL
  6. VIT D [Concomitant]
     Active Substance: VITAMIN D NOS
  7. STIMULATOR (EXOGEN ULTRASOUND BONE HEALING SYSTEM) [Concomitant]
  8. DIPHENHYDRAMINE HCL [Concomitant]
     Active Substance: DIPHENHYDRAMINE HYDROCHLORIDE

REACTIONS (1)
  - Hip fracture [None]

NARRATIVE: CASE EVENT DATE: 20181115
